FAERS Safety Report 6293399-5 (Version None)
Quarter: 2009Q3

REPORT INFORMATION
  Report Type: 
  Country: None (occurrence: None)
  Receive Date: 20090731
  Receipt Date: 20090721
  Transmission Date: 20100115
  Serious: Yes (Hospitalization)
  Sender: FDA-Public Use
  Company Number: DE-ELI_LILLY_AND_COMPANY-DE200906005973

PATIENT
  Age: 87 Year
  Sex: Female

DRUGS (18)
  1. ZYPREXA [Suspect]
     Indication: DEPRESSION
     Dosage: 7.5 MG, DAILY (1/D)
     Route: 048
     Dates: start: 20090223
  2. VENLAFAXINE HCL [Concomitant]
     Dosage: 75 MG, UNK
     Route: 048
     Dates: start: 20090127, end: 20090203
  3. VENLAFAXINE HCL [Concomitant]
     Dosage: 150 MG, UNK
     Route: 048
     Dates: start: 20090204, end: 20090227
  4. VENLAFAXINE HCL [Concomitant]
     Dosage: 75 MG, UNK
     Route: 048
     Dates: start: 20090228
  5. NORTRIPTYLINE HCL [Concomitant]
     Dosage: 50 MG, UNK
     Route: 048
     Dates: start: 20090228, end: 20090302
  6. TAVOR [Concomitant]
     Dosage: 1.5 MG, UNK
     Route: 048
     Dates: start: 20090106, end: 20090109
  7. TAVOR [Concomitant]
     Dosage: 1 MG, UNK
     Route: 048
     Dates: start: 20090110, end: 20090114
  8. TAVOR [Concomitant]
     Dosage: 0.5 MG, UNK
     Route: 048
     Dates: start: 20090115, end: 20090117
  9. TAVOR [Concomitant]
     Dosage: 1 MG, UNK
     Route: 048
     Dates: start: 20090118, end: 20090213
  10. TAVOR [Concomitant]
     Dosage: 1.5 MG, UNK
     Route: 048
     Dates: start: 20090214, end: 20090222
  11. TAVOR [Concomitant]
     Dosage: 1 MG, UNK
     Route: 048
     Dates: start: 20090223
  12. TOREM [Concomitant]
     Dosage: 10 MG, UNK
     Route: 048
  13. LEVOTHYROXINE SODIUM [Concomitant]
     Dosage: 100 UG, UNK
  14. DIGITOXIN TAB [Concomitant]
     Dosage: 0.05 MG, UNK
  15. CARVEDILOL [Concomitant]
     Dosage: 50 MG, UNK
  16. SPIRONOLACTONE [Concomitant]
     Dosage: 25 MG, UNK
  17. PANTOZOL [Concomitant]
     Dosage: 20 MG, UNK
  18. MARCUMAR [Concomitant]

REACTIONS (3)
  - DELIRIUM [None]
  - DRUG INTERACTION [None]
  - OFF LABEL USE [None]
